FAERS Safety Report 16836032 (Version 1)
Quarter: 2019Q3

REPORT INFORMATION
  Report Type: Spontaneous
  Country: FR (occurrence: FR)
  Receive Date: 20190920
  Receipt Date: 20190920
  Transmission Date: 20191005
  Serious: Yes (Hospitalization, Other)
  Sender: FDA-Public Use
  Company Number: FR-AUROBINDO-AUR-APL-2019-060745

PATIENT

DRUGS (7)
  1. ATARAX [Suspect]
     Active Substance: HYDROXYZINE HYDROCHLORIDE
     Indication: ANXIETY
     Dosage: UNK
     Route: 065
  2. MALOCIDE (PYRIMETHAMINE) [Suspect]
     Active Substance: PYRIMETHAMINE
     Indication: CEREBRAL TOXOPLASMOSIS
     Dosage: 50 MG, QD
     Route: 048
     Dates: start: 20190806
  3. TRIUMEQ [Suspect]
     Active Substance: ABACAVIR SULFATE\DOLUTEGRAVIR SODIUM\LAMIVUDINE
     Indication: HIV INFECTION
     Dosage: 1 DF, QD
     Route: 048
     Dates: start: 20190825
  4. PARACETAMOL [Suspect]
     Active Substance: ACETAMINOPHEN
     Indication: PAIN
     Dosage: 1 G, PRN  (1G*3/D)
     Route: 048
     Dates: start: 20190806
  5. ADIAZINE [Suspect]
     Active Substance: SULFADIAZINE
     Dosage: 3 DF, QID
     Route: 048
     Dates: start: 20190806
  6. ATARAX [Suspect]
     Active Substance: HYDROXYZINE HYDROCHLORIDE
     Indication: INSOMNIA
     Dosage: 25 MG, UNK
     Route: 054
     Dates: start: 20190806
  7. ADIAZINE [Suspect]
     Active Substance: SULFADIAZINE
     Indication: PRODUCT USED FOR UNKNOWN INDICATION
     Dosage: 2 DF, QID
     Route: 048
     Dates: start: 20190823

REACTIONS (6)
  - Herpes zoster [Unknown]
  - Immune thrombocytopenic purpura [Unknown]
  - Thrombocytopenia [Unknown]
  - Purpura [Unknown]
  - Leukopenia [Unknown]
  - Neutropenia [Unknown]

NARRATIVE: CASE EVENT DATE: 20190827
